FAERS Safety Report 7699626-1 (Version None)
Quarter: 2011Q3

REPORT INFORMATION
  Report Type: 
  Country: None (occurrence: None)
  Receive Date: 20110822
  Receipt Date: 20110811
  Transmission Date: 20111222
  Serious: No
  Sender: FDA-Public Use
  Company Number: US-BIOGENIDEC-2011BI012724

PATIENT
  Age: 35 Year
  Sex: Female

DRUGS (3)
  1. TYSABRI [Suspect]
     Indication: MULTIPLE SCLEROSIS
     Route: 042
     Dates: start: 20110103
  2. AVONEX [Concomitant]
     Route: 030
     Dates: start: 20021128
  3. AVONEX [Concomitant]
     Indication: MULTIPLE SCLEROSIS
     Route: 030

REACTIONS (10)
  - BALANCE DISORDER [None]
  - SPEECH DISORDER [None]
  - HEAD INJURY [None]
  - HEADACHE [None]
  - GAIT DISTURBANCE [None]
  - MULTIPLE SCLEROSIS RELAPSE [None]
  - TREMOR [None]
  - FALL [None]
  - CENTRAL NERVOUS SYSTEM LESION [None]
  - CONCUSSION [None]
